FAERS Safety Report 8483629 (Version 2)
Quarter: 2012Q4

REPORT INFORMATION
  Report Type: Report from Study
  Country: GB (occurrence: GB)
  Receive Date: 20120329
  Receipt Date: 20120924
  Transmission Date: 20130627
  Serious: Yes (Hospitalization)
  Sender: FDA-Public Use
  Company Number: GB-ROCHE-1051916

PATIENT
  Sex: Male
  Weight: 88 kg

DRUGS (7)
  1. MABTHERA [Suspect]
     Indication: PRODUCT USED FOR UNKNOWN INDICATION
     Dosage: Last dose prior to SAE : 25/Aug/2011
     Route: 065
     Dates: start: 20110811
  2. METHOTREXATE [Concomitant]
     Route: 048
  3. HYDROXYCHLOROQUINE [Concomitant]
     Route: 065
  4. FOLIC ACID [Concomitant]
     Route: 065
  5. SIMVASTATIN [Concomitant]
     Route: 065
  6. ASPIRIN [Concomitant]
     Route: 065
  7. NAPROXEN [Concomitant]
     Route: 065

REACTIONS (1)
  - Aortic bypass [Unknown]
